FAERS Safety Report 7290004-6 (Version None)
Quarter: 2011Q1

REPORT INFORMATION
  Report Type: 
  Country: None (occurrence: None)
  Receive Date: 20110214
  Receipt Date: 20110204
  Transmission Date: 20110831
  Serious: Yes (Hospitalization, Other)
  Sender: FDA-Public Use
  Company Number: US-AMGEN-USASP2011007381

PATIENT
  Age: 21 Year
  Sex: Male

DRUGS (1)
  1. PROCRIT [Suspect]
     Indication: SICKLE CELL ANAEMIA

REACTIONS (5)
  - MENTAL STATUS CHANGES [None]
  - REFRACTORY ANAEMIA [None]
  - SERUM FERRITIN INCREASED [None]
  - PAIN [None]
  - ANTI-ERYTHROPOIETIN ANTIBODY [None]
